FAERS Safety Report 16534623 (Version 1)
Quarter: 2019Q3

REPORT INFORMATION
  Report Type: Spontaneous
  Country: US (occurrence: US)
  Receive Date: 20190705
  Receipt Date: 20190705
  Transmission Date: 20191004
  Serious: No
  Sender: FDA-Public Use
  Company Number: US-TEVA-2019-US-1063846

PATIENT
  Age: 65 Year
  Sex: Male
  Weight: 57.1 kg

DRUGS (9)
  1. ACTIQ [Suspect]
     Active Substance: FENTANYL CITRATE
     Indication: PRODUCT USED FOR UNKNOWN INDICATION
     Dosage: LOLLIPOPS
     Route: 048
     Dates: end: 2019
  2. OXYCONTIN [Suspect]
     Active Substance: OXYCODONE HYDROCHLORIDE
     Route: 065
  3. XTAMPZA ER [Suspect]
     Active Substance: OXYCODONE
     Dosage: 36 MILLIGRAM DAILY; EXTENDED RELEASE
     Route: 048
     Dates: start: 20190221
  4. OXYCODONE [Suspect]
     Active Substance: OXYCODONE
     Dosage: 240 MILLIGRAM DAILY;
     Route: 065
  5. OXYCONTIN [Suspect]
     Active Substance: OXYCODONE HYDROCHLORIDE
     Route: 065
  6. OXYCONTIN [Suspect]
     Active Substance: OXYCODONE HYDROCHLORIDE
     Route: 065
     Dates: end: 2019
  7. OXYCODONE [Suspect]
     Active Substance: OXYCODONE
     Dosage: OXYCODONE ER
     Route: 065
  8. XTAMPZA ER [Suspect]
     Active Substance: OXYCODONE
     Indication: DRUG DEPENDENCE
     Dosage: 54 MILLIGRAM DAILY; EXTENDED RELEASE
     Route: 048
     Dates: start: 20190221
  9. OXYCONTIN [Suspect]
     Active Substance: OXYCODONE HYDROCHLORIDE
     Route: 065

REACTIONS (3)
  - Intentional product misuse [Unknown]
  - Nausea [Unknown]
  - Withdrawal syndrome [Unknown]
